FAERS Safety Report 5019075-4 (Version None)
Quarter: 2006Q2

REPORT INFORMATION
  Report Type: 
  Country: None (occurrence: None)
  Receive Date: 20060531
  Receipt Date: 20060505
  Transmission Date: 20061013
  Serious: Yes (Death)
  Sender: FDA-Public Use
  Company Number: 200612300BWH

PATIENT
  Age: 68 Year
  Sex: Male

DRUGS (1)
  1. CIPRO [Suspect]
     Dosage: 500 MG

REACTIONS (1)
  - DEATH [None]
